FAERS Safety Report 16889455 (Version 1)
Quarter: 2019Q4

REPORT INFORMATION
  Report Type: Spontaneous
  Country: US (occurrence: US)
  Receive Date: 20191007
  Receipt Date: 20191007
  Transmission Date: 20200122
  Serious: Yes (Other)
  Sender: FDA-Public Use
  Company Number: US-TEVA-2019-US-1118760

PATIENT
  Age: 61 Year
  Sex: Male

DRUGS (4)
  1. METHYLPREDNISOLONE IV [Suspect]
     Active Substance: METHYLPREDNISOLONE
     Indication: ENCEPHALITIS
     Dosage: TREATED WITH HIGH DOSE IV METHYLPREDNISOLONE [ DOSAGE NOT STATED ].
     Route: 042
  2. CYCLOPHOSPHAMIDE. [Concomitant]
     Active Substance: CYCLOPHOSPHAMIDE
     Indication: ENCEPHALITIS
     Route: 065
  3. METHYLPREDNISOLONE IV [Suspect]
     Active Substance: METHYLPREDNISOLONE
     Indication: NECROSIS
     Dosage: ONCE AGAIN TREATED WITH IV METHYLPREDNISOLONE
     Route: 042
  4. CYCLOPHOSPHAMIDE. [Concomitant]
     Active Substance: CYCLOPHOSPHAMIDE
     Indication: NECROSIS

REACTIONS (1)
  - Therapy non-responder [Unknown]
